FAERS Safety Report 7793209-0 (Version None)
Quarter: 2011Q4

REPORT INFORMATION
  Report Type: 
  Country: None (occurrence: None)
  Receive Date: 20111003
  Receipt Date: 20110919
  Transmission Date: 20120403
  Serious: Yes (Other)
  Sender: FDA-Public Use
  Company Number: US-ELI_LILLY_AND_COMPANY-US201107000095

PATIENT
  Sex: Female

DRUGS (2)
  1. HUMALOG MIX 75/25 [Suspect]
     Dosage: 25 U, PRN
     Dates: start: 20090101
  2. HUMALOG MIX 75/25 [Suspect]
     Indication: DIABETES MELLITUS
     Dosage: 70 U, BID
     Dates: start: 20090101

REACTIONS (5)
  - CATARACT [None]
  - BLINDNESS [None]
  - MACULAR DEGENERATION [None]
  - LASER THERAPY [None]
  - MACULAR SCAR [None]
